FAERS Safety Report 17715785 (Version 1)
Quarter: 2020Q2

REPORT INFORMATION
  Report Type: Spontaneous
  Country: CA (occurrence: CA)
  Receive Date: 20200427
  Receipt Date: 20200427
  Transmission Date: 20200714
  Serious: Yes (Death, Other)
  Sender: FDA-Public Use
  Company Number: CA-BAXTER-2020BAX009002

PATIENT

DRUGS (15)
  1. DAUNORUBICIN [Suspect]
     Active Substance: DAUNORUBICIN
     Indication: PRODUCT USED FOR UNKNOWN INDICATION
     Route: 042
  2. ETOPOSIDE. [Suspect]
     Active Substance: ETOPOSIDE
     Indication: PRODUCT USED FOR UNKNOWN INDICATION
     Route: 065
  3. METHOTREXATE. [Suspect]
     Active Substance: METHOTREXATE
     Indication: ACUTE LYMPHOCYTIC LEUKAEMIA
     Route: 065
  4. PROCYTOX (CYCLOPHOSPHAMIDE) 2000MG/VIAL [Suspect]
     Active Substance: CYCLOPHOSPHAMIDE
     Indication: ACUTE LYMPHOCYTIC LEUKAEMIA
     Dosage: DOSAGE FORM: NOT SPECIFIED
     Route: 065
  5. FOLINIC ACID [Suspect]
     Active Substance: LEUCOVORIN
     Indication: ACUTE LYMPHOCYTIC LEUKAEMIA
     Route: 065
  6. UROMITEXAN (MESNA INJECTION) 100MG/ML [Suspect]
     Active Substance: MESNA
     Indication: ACUTE LYMPHOCYTIC LEUKAEMIA
     Dosage: DOSAGE FORM: SOLUTION INTRAVENOUS
     Route: 065
  7. MERCAPTOPURINE. [Suspect]
     Active Substance: MERCAPTOPURINE
     Indication: ACUTE LYMPHOCYTIC LEUKAEMIA
     Route: 065
  8. DEXAMETHASONE. [Suspect]
     Active Substance: DEXAMETHASONE
     Indication: ACUTE LYMPHOCYTIC LEUKAEMIA
     Route: 065
  9. PREDNISONE. [Suspect]
     Active Substance: PREDNISONE
     Indication: ACUTE LYMPHOCYTIC LEUKAEMIA
     Dosage: DOSAGE FORM: NOT SPECIFIED
     Route: 065
  10. CICLOSPORIN [Suspect]
     Active Substance: CYCLOSPORINE
     Indication: ACUTE LYMPHOCYTIC LEUKAEMIA
     Route: 065
  11. CYTARABINE. [Suspect]
     Active Substance: CYTARABINE
     Indication: ACUTE LYMPHOCYTIC LEUKAEMIA
     Dosage: DOSAGE FORM: POWDER
     Route: 065
  12. FILGRASTIM [Suspect]
     Active Substance: FILGRASTIM
     Indication: ACUTE LYMPHOCYTIC LEUKAEMIA
     Route: 065
  13. METHYLPREDNISOLONE. [Suspect]
     Active Substance: METHYLPREDNISOLONE
     Indication: ACUTE LYMPHOCYTIC LEUKAEMIA
     Route: 065
  14. ASPARAGINASE [Suspect]
     Active Substance: ASPARAGINASE
     Indication: ACUTE LYMPHOCYTIC LEUKAEMIA
     Route: 065
  15. PEGASPARGASE [Suspect]
     Active Substance: PEGASPARGASE
     Indication: ACUTE LYMPHOCYTIC LEUKAEMIA
     Route: 065

REACTIONS (3)
  - Pseudomonal sepsis [Fatal]
  - Bronchopulmonary aspergillosis [Fatal]
  - Viral infection [Fatal]
